FAERS Safety Report 24815395 (Version 3)
Quarter: 2025Q2

REPORT INFORMATION
  Report Type: Spontaneous
  Country: CA (occurrence: CA)
  Receive Date: 20250107
  Receipt Date: 20250630
  Transmission Date: 20250717
  Serious: Yes (Death, Life-Threatening, Hospitalization, Disabling, Other)
  Sender: NOVARTIS
  Company Number: CA-002147023-NVSC2024CA248173

PATIENT
  Age: 44 Year
  Sex: Female
  Weight: 68 kg

DRUGS (540)
  1. DICLOFENAC DIETHYLAMINE [Suspect]
     Active Substance: DICLOFENAC DIETHYLAMINE
     Indication: Rheumatoid arthritis
     Route: 065
  2. DICLOFENAC DIETHYLAMINE [Suspect]
     Active Substance: DICLOFENAC DIETHYLAMINE
     Route: 065
  3. DICLOFENAC DIETHYLAMINE [Suspect]
     Active Substance: DICLOFENAC DIETHYLAMINE
     Route: 065
  4. DICLOFENAC SODIUM [Suspect]
     Active Substance: DICLOFENAC SODIUM
     Indication: Product used for unknown indication
     Dosage: 50 MG, QD, (1 EVERY 1 DAYS)
     Route: 065
  5. DICLOFENAC SODIUM [Suspect]
     Active Substance: DICLOFENAC SODIUM
     Route: 065
  6. DICLOFENAC SODIUM [Suspect]
     Active Substance: DICLOFENAC SODIUM
     Route: 065
  7. DICLOFENAC POTASSIUM [Suspect]
     Active Substance: DICLOFENAC POTASSIUM
     Indication: Product used for unknown indication
     Route: 065
  8. ADALIMUMAB [Suspect]
     Active Substance: ADALIMUMAB
     Indication: Rheumatoid arthritis
     Route: 058
  9. ADALIMUMAB [Suspect]
     Active Substance: ADALIMUMAB
     Route: 065
  10. ADALIMUMAB [Suspect]
     Active Substance: ADALIMUMAB
     Route: 058
  11. ADALIMUMAB [Suspect]
     Active Substance: ADALIMUMAB
     Route: 058
  12. COSENTYX [Suspect]
     Active Substance: SECUKINUMAB
     Indication: Psoriatic arthropathy
     Route: 065
  13. COSENTYX [Suspect]
     Active Substance: SECUKINUMAB
     Route: 065
  14. COSENTYX [Suspect]
     Active Substance: SECUKINUMAB
     Route: 065
  15. COSENTYX [Suspect]
     Active Substance: SECUKINUMAB
     Route: 065
  16. COSENTYX [Suspect]
     Active Substance: SECUKINUMAB
     Route: 065
  17. ERELZI [Suspect]
     Active Substance: ETANERCEPT-SZZS
     Indication: Rheumatoid arthritis
     Route: 065
  18. ERELZI [Suspect]
     Active Substance: ETANERCEPT-SZZS
     Route: 065
  19. ERELZI [Suspect]
     Active Substance: ETANERCEPT-SZZS
     Route: 065
  20. ERELZI [Suspect]
     Active Substance: ETANERCEPT-SZZS
     Route: 058
  21. ERELZI [Suspect]
     Active Substance: ETANERCEPT-SZZS
     Route: 065
  22. ERELZI [Suspect]
     Active Substance: ETANERCEPT-SZZS
     Route: 065
  23. ERELZI [Suspect]
     Active Substance: ETANERCEPT-SZZS
     Route: 065
  24. ERELZI [Suspect]
     Active Substance: ETANERCEPT-SZZS
     Route: 065
  25. ERELZI [Suspect]
     Active Substance: ETANERCEPT-SZZS
     Route: 065
  26. ERELZI [Suspect]
     Active Substance: ETANERCEPT-SZZS
     Route: 058
  27. ERELZI [Suspect]
     Active Substance: ETANERCEPT-SZZS
     Route: 058
  28. ERELZI [Suspect]
     Active Substance: ETANERCEPT-SZZS
     Route: 058
  29. LEFLUNOMIDE [Suspect]
     Active Substance: LEFLUNOMIDE
     Indication: Rheumatoid arthritis
     Dosage: 20 MG, QD
     Route: 065
  30. LEFLUNOMIDE [Suspect]
     Active Substance: LEFLUNOMIDE
     Route: 048
  31. LEFLUNOMIDE [Suspect]
     Active Substance: LEFLUNOMIDE
     Dosage: 20 MG, QD, (1 EVERY 1 DAYS)
     Route: 048
  32. LEFLUNOMIDE [Suspect]
     Active Substance: LEFLUNOMIDE
     Route: 065
  33. LEFLUNOMIDE [Suspect]
     Active Substance: LEFLUNOMIDE
     Route: 065
  34. RITUXIMAB [Suspect]
     Active Substance: RITUXIMAB
     Indication: Rheumatoid arthritis
     Route: 041
  35. RITUXIMAB [Suspect]
     Active Substance: RITUXIMAB
     Route: 042
  36. RITUXIMAB [Suspect]
     Active Substance: RITUXIMAB
     Route: 043
  37. RITUXIMAB [Suspect]
     Active Substance: RITUXIMAB
     Route: 042
  38. RITUXIMAB [Suspect]
     Active Substance: RITUXIMAB
     Route: 042
  39. RITUXIMAB [Suspect]
     Active Substance: RITUXIMAB
     Route: 042
  40. RITUXIMAB [Suspect]
     Active Substance: RITUXIMAB
     Route: 042
  41. RITUXIMAB [Suspect]
     Active Substance: RITUXIMAB
     Route: 041
  42. MYCOPHENOLATE MOFETIL [Suspect]
     Active Substance: MYCOPHENOLATE MOFETIL
     Indication: Rheumatoid arthritis
     Route: 065
  43. ACETAMINOPHEN [Suspect]
     Active Substance: ACETAMINOPHEN
     Indication: Rheumatoid arthritis
     Route: 065
  44. ACETAMINOPHEN [Suspect]
     Active Substance: ACETAMINOPHEN
     Route: 065
  45. ACETAMINOPHEN [Suspect]
     Active Substance: ACETAMINOPHEN
     Route: 065
  46. HYDROCORTISONE [Suspect]
     Active Substance: HYDROCORTISONE
     Indication: Rheumatoid arthritis
     Route: 050
  47. HYDROCORTISONE [Suspect]
     Active Substance: HYDROCORTISONE
     Route: 058
  48. HYDROCORTISONE [Suspect]
     Active Substance: HYDROCORTISONE
     Route: 048
  49. HYDROCORTISONE [Suspect]
     Active Substance: HYDROCORTISONE
     Route: 050
  50. HYDROCORTISONE [Suspect]
     Active Substance: HYDROCORTISONE
     Route: 003
  51. HYDROCORTISONE [Suspect]
     Active Substance: HYDROCORTISONE
     Route: 065
  52. HYDROCORTISONE [Suspect]
     Active Substance: HYDROCORTISONE
     Route: 058
  53. HYDROCORTISONE [Suspect]
     Active Substance: HYDROCORTISONE
     Route: 003
  54. HYDROCORTISONE [Suspect]
     Active Substance: HYDROCORTISONE
     Route: 058
  55. VITAMIN C [Suspect]
     Active Substance: ASCORBIC ACID
     Indication: Product used for unknown indication
     Route: 065
  56. ACTEMRA [Suspect]
     Active Substance: TOCILIZUMAB
     Indication: Rheumatoid arthritis
     Route: 050
  57. ACTEMRA [Suspect]
     Active Substance: TOCILIZUMAB
     Route: 058
  58. ACTEMRA [Suspect]
     Active Substance: TOCILIZUMAB
     Route: 065
  59. ACTEMRA [Suspect]
     Active Substance: TOCILIZUMAB
     Route: 042
  60. ACTEMRA [Suspect]
     Active Substance: TOCILIZUMAB
     Route: 048
  61. ACTEMRA [Suspect]
     Active Substance: TOCILIZUMAB
     Route: 048
  62. ACTEMRA [Suspect]
     Active Substance: TOCILIZUMAB
     Route: 048
  63. ACTEMRA [Suspect]
     Active Substance: TOCILIZUMAB
     Route: 048
  64. ACTEMRA [Suspect]
     Active Substance: TOCILIZUMAB
     Route: 042
  65. ACTEMRA [Suspect]
     Active Substance: TOCILIZUMAB
     Route: 058
  66. ACTEMRA [Suspect]
     Active Substance: TOCILIZUMAB
     Route: 042
  67. ACTEMRA [Suspect]
     Active Substance: TOCILIZUMAB
     Route: 058
  68. ACTEMRA [Suspect]
     Active Substance: TOCILIZUMAB
     Route: 065
  69. ACTEMRA [Suspect]
     Active Substance: TOCILIZUMAB
     Route: 065
  70. ACTEMRA [Suspect]
     Active Substance: TOCILIZUMAB
     Route: 042
  71. ACTEMRA [Suspect]
     Active Substance: TOCILIZUMAB
     Route: 042
  72. ACTEMRA [Suspect]
     Active Substance: TOCILIZUMAB
     Route: 058
  73. ACTEMRA [Suspect]
     Active Substance: TOCILIZUMAB
     Route: 065
  74. DICLOFENAC POTASSIUM [Suspect]
     Active Substance: DICLOFENAC POTASSIUM
     Indication: Product used for unknown indication
     Route: 065
  75. DICLOFENAC POTASSIUM [Suspect]
     Active Substance: DICLOFENAC POTASSIUM
     Route: 065
  76. LEFLUNOMIDE [Suspect]
     Active Substance: LEFLUNOMIDE
     Indication: Rheumatoid arthritis
     Route: 048
  77. LEFLUNOMIDE [Suspect]
     Active Substance: LEFLUNOMIDE
     Route: 065
  78. LEFLUNOMIDE [Suspect]
     Active Substance: LEFLUNOMIDE
     Route: 065
  79. LEFLUNOMIDE [Suspect]
     Active Substance: LEFLUNOMIDE
     Route: 065
  80. LEFLUNOMIDE [Suspect]
     Active Substance: LEFLUNOMIDE
     Route: 048
  81. APREMILAST [Suspect]
     Active Substance: APREMILAST
     Indication: Product used for unknown indication
     Route: 065
  82. APREMILAST [Suspect]
     Active Substance: APREMILAST
     Route: 065
  83. APREMILAST [Suspect]
     Active Substance: APREMILAST
     Route: 065
  84. APREMILAST [Suspect]
     Active Substance: APREMILAST
     Route: 065
  85. APREMILAST [Suspect]
     Active Substance: APREMILAST
     Route: 065
  86. APREMILAST [Suspect]
     Active Substance: APREMILAST
     Route: 048
  87. APREMILAST [Suspect]
     Active Substance: APREMILAST
     Route: 042
  88. APREMILAST [Suspect]
     Active Substance: APREMILAST
     Route: 042
  89. APREMILAST [Suspect]
     Active Substance: APREMILAST
     Route: 048
  90. APREPITANT [Suspect]
     Active Substance: APREPITANT
     Indication: Product used for unknown indication
     Route: 042
  91. APREPITANT [Suspect]
     Active Substance: APREPITANT
     Route: 042
  92. ARAVA [Suspect]
     Active Substance: LEFLUNOMIDE
     Indication: Rheumatoid arthritis
     Route: 065
  93. ARAVA [Suspect]
     Active Substance: LEFLUNOMIDE
     Route: 048
  94. ARAVA [Suspect]
     Active Substance: LEFLUNOMIDE
     Route: 048
  95. ARAVA [Suspect]
     Active Substance: LEFLUNOMIDE
     Route: 065
  96. ARAVA [Suspect]
     Active Substance: LEFLUNOMIDE
     Route: 065
  97. ARAVA [Suspect]
     Active Substance: LEFLUNOMIDE
     Route: 048
  98. ASACOL [Suspect]
     Active Substance: MESALAMINE
     Indication: Product used for unknown indication
     Route: 065
  99. CELEBREX [Suspect]
     Active Substance: CELECOXIB
     Indication: Product used for unknown indication
     Dosage: 2 DOSAGE FORM, QD
     Route: 048
  100. CELEBREX [Suspect]
     Active Substance: CELECOXIB
     Route: 065
  101. CERTOLIZUMAB PEGOL [Suspect]
     Active Substance: CERTOLIZUMAB PEGOL
     Indication: Rheumatoid arthritis
     Route: 058
  102. CETIRIZINE HYDROCHLORIDE [Suspect]
     Active Substance: CETIRIZINE HYDROCHLORIDE
     Indication: Rheumatoid arthritis
     Dosage: 10 MG, QD
     Route: 065
  103. CETIRIZINE HYDROCHLORIDE [Suspect]
     Active Substance: CETIRIZINE HYDROCHLORIDE
     Dosage: 10 MG, QD
     Route: 048
  104. CETIRIZINE HYDROCHLORIDE [Suspect]
     Active Substance: CETIRIZINE HYDROCHLORIDE
     Route: 065
  105. CETIRIZINE HYDROCHLORIDE [Suspect]
     Active Substance: CETIRIZINE HYDROCHLORIDE
     Route: 065
  106. CETIRIZINE HYDROCHLORIDE [Suspect]
     Active Substance: CETIRIZINE HYDROCHLORIDE
     Route: 065
  107. CETIRIZINE HYDROCHLORIDE [Suspect]
     Active Substance: CETIRIZINE HYDROCHLORIDE
     Route: 065
  108. CETIRIZINE HYDROCHLORIDE [Suspect]
     Active Substance: CETIRIZINE HYDROCHLORIDE
     Route: 065
  109. CETIRIZINE HYDROCHLORIDE [Suspect]
     Active Substance: CETIRIZINE HYDROCHLORIDE
     Dosage: 10 MG, QD, (1 EVERY 1 DAYS)
     Route: 048
  110. CETIRIZINE HYDROCHLORIDE [Suspect]
     Active Substance: CETIRIZINE HYDROCHLORIDE
     Route: 065
  111. CETIRIZINE HYDROCHLORIDE [Suspect]
     Active Substance: CETIRIZINE HYDROCHLORIDE
     Route: 048
  112. CETIRIZINE HYDROCHLORIDE [Suspect]
     Active Substance: CETIRIZINE HYDROCHLORIDE
     Route: 065
  113. CETIRIZINE HYDROCHLORIDE [Suspect]
     Active Substance: CETIRIZINE HYDROCHLORIDE
     Route: 065
  114. CETIRIZINE HYDROCHLORIDE [Suspect]
     Active Substance: CETIRIZINE HYDROCHLORIDE
     Route: 065
  115. CETIRIZINE HYDROCHLORIDE\PSEUDOEPHEDRINE HYDROCHLORIDE [Suspect]
     Active Substance: CETIRIZINE HYDROCHLORIDE\PSEUDOEPHEDRINE HYDROCHLORIDE
     Indication: Rheumatoid arthritis
     Route: 065
  116. CETIRIZINE HYDROCHLORIDE AND PSEUDOEPHEDRINE HYDROCHLORIDE [Suspect]
     Active Substance: CETIRIZINE HYDROCHLORIDE\PSEUDOEPHEDRINE HYDROCHLORIDE
     Indication: Rheumatoid arthritis
     Route: 065
  117. CIMZIA [Suspect]
     Active Substance: CERTOLIZUMAB PEGOL
     Indication: Rheumatoid arthritis
     Dosage: 400 MG, QMO
     Route: 058
  118. CIMZIA [Suspect]
     Active Substance: CERTOLIZUMAB PEGOL
     Indication: Psoriasis
     Route: 065
  119. CIMZIA [Suspect]
     Active Substance: CERTOLIZUMAB PEGOL
     Route: 065
  120. CODEINE [Suspect]
     Active Substance: CODEINE
     Indication: Product used for unknown indication
     Route: 065
  121. HYDROCORTISONE ACETATE [Suspect]
     Active Substance: HYDROCORTISONE ACETATE
     Indication: Rheumatoid arthritis
     Route: 058
  122. HYDROCORTISONE ACETATE [Suspect]
     Active Substance: HYDROCORTISONE ACETATE
     Route: 003
  123. HYDROCORTISONE ACETATE [Suspect]
     Active Substance: HYDROCORTISONE ACETATE
     Route: 048
  124. HYDROCORTISONE ACETATE [Suspect]
     Active Substance: HYDROCORTISONE ACETATE
     Route: 065
  125. CORTISONE [Suspect]
     Active Substance: CORTISONE
     Indication: Rheumatoid arthritis
     Route: 065
  126. CORTISONE [Suspect]
     Active Substance: CORTISONE
     Route: 050
  127. CORTISONE [Suspect]
     Active Substance: CORTISONE
     Route: 048
  128. CORTISONE [Suspect]
     Active Substance: CORTISONE
     Route: 065
  129. CORTISONE [Suspect]
     Active Substance: CORTISONE
     Route: 065
  130. CORTISONE [Suspect]
     Active Substance: CORTISONE
     Route: 065
  131. CORTISONE [Suspect]
     Active Substance: CORTISONE
     Route: 048
  132. CORTISONE [Suspect]
     Active Substance: CORTISONE
     Route: 065
  133. CORTISONE [Suspect]
     Active Substance: CORTISONE
     Route: 065
  134. CORTISONE [Suspect]
     Active Substance: CORTISONE
     Route: 048
  135. CORTISONE [Suspect]
     Active Substance: CORTISONE
     Route: 065
  136. CORTISONE [Suspect]
     Active Substance: CORTISONE
     Indication: Rheumatoid arthritis
     Route: 048
  137. CORTISONE [Suspect]
     Active Substance: CORTISONE
     Route: 003
  138. CORTISONE [Suspect]
     Active Substance: CORTISONE
     Route: 058
  139. CORTISONE [Suspect]
     Active Substance: CORTISONE
     Route: 065
  140. DESOXIMETASONE [Suspect]
     Active Substance: DESOXIMETASONE
     Indication: Rheumatoid arthritis
     Dosage: 25 MG, QW, (1 EVERY 1 WEEKS)
     Route: 065
  141. DESOXIMETASONE [Suspect]
     Active Substance: DESOXIMETASONE
     Dosage: 25 MG, QW
     Route: 048
  142. DESOXIMETASONE [Suspect]
     Active Substance: DESOXIMETASONE
     Dosage: 25 MG, QW
     Route: 003
  143. DESOXIMETASONE [Suspect]
     Active Substance: DESOXIMETASONE
     Dosage: 25 MG, QW
     Route: 058
  144. DESOXIMETASONE [Suspect]
     Active Substance: DESOXIMETASONE
     Dosage: 25 MG, QW (TOPICAL)
     Route: 050
  145. DESOXIMETASONE [Suspect]
     Active Substance: DESOXIMETASONE
     Route: 065
  146. DESOXIMETASONE [Suspect]
     Active Substance: DESOXIMETASONE
     Route: 065
  147. DESOXIMETASONE [Suspect]
     Active Substance: DESOXIMETASONE
     Route: 065
  148. DESOXIMETASONE [Suspect]
     Active Substance: DESOXIMETASONE
     Route: 065
  149. DESOXIMETASONE [Suspect]
     Active Substance: DESOXIMETASONE
     Route: 065
  150. DESOXIMETASONE [Suspect]
     Active Substance: DESOXIMETASONE
     Route: 065
  151. DESOXIMETASONE [Suspect]
     Active Substance: DESOXIMETASONE
     Route: 003
  152. DESOXIMETASONE [Suspect]
     Active Substance: DESOXIMETASONE
     Route: 003
  153. DESOXIMETASONE [Suspect]
     Active Substance: DESOXIMETASONE
     Route: 003
  154. DESOXIMETASONE [Suspect]
     Active Substance: DESOXIMETASONE
     Route: 048
  155. DESOXIMETASONE [Suspect]
     Active Substance: DESOXIMETASONE
     Route: 048
  156. DESOXIMETASONE [Suspect]
     Active Substance: DESOXIMETASONE
     Route: 048
  157. DESOXIMETASONE [Suspect]
     Active Substance: DESOXIMETASONE
     Route: 048
  158. DESOXIMETASONE [Suspect]
     Active Substance: DESOXIMETASONE
     Route: 048
  159. DESOXIMETASONE [Suspect]
     Active Substance: DESOXIMETASONE
     Route: 048
  160. DESOXIMETASONE [Suspect]
     Active Substance: DESOXIMETASONE
     Route: 048
  161. DESOXIMETASONE [Suspect]
     Active Substance: DESOXIMETASONE
     Route: 048
  162. DESOXIMETASONE [Suspect]
     Active Substance: DESOXIMETASONE
     Route: 048
  163. DESOXIMETASONE [Suspect]
     Active Substance: DESOXIMETASONE
     Route: 058
  164. DESOXIMETASONE [Suspect]
     Active Substance: DESOXIMETASONE
     Route: 058
  165. DESOXIMETASONE [Suspect]
     Active Substance: DESOXIMETASONE
     Route: 058
  166. DESOXIMETASONE [Suspect]
     Active Substance: DESOXIMETASONE
     Route: 058
  167. DESOXIMETASONE [Suspect]
     Active Substance: DESOXIMETASONE
     Route: 058
  168. DESOXIMETASONE [Suspect]
     Active Substance: DESOXIMETASONE
     Route: 065
  169. DESOXIMETASONE [Suspect]
     Active Substance: DESOXIMETASONE
     Route: 065
  170. DESOXIMETASONE [Suspect]
     Active Substance: DESOXIMETASONE
     Route: 065
  171. DESOXIMETASONE [Suspect]
     Active Substance: DESOXIMETASONE
     Route: 065
  172. DILTIAZEM HYDROCHLORIDE [Suspect]
     Active Substance: DILTIAZEM HYDROCHLORIDE
     Indication: Product used for unknown indication
     Route: 065
  173. DILTIAZEM HYDROCHLORIDE [Suspect]
     Active Substance: DILTIAZEM HYDROCHLORIDE
     Route: 042
  174. DOXYCYCLINE [Suspect]
     Active Substance: DOXYCYCLINE
     Indication: Product used for unknown indication
     Route: 065
  175. ENBREL [Suspect]
     Active Substance: ETANERCEPT
     Indication: Rheumatoid arthritis
     Dosage: 50 MG, QW
     Route: 065
  176. ENBREL [Suspect]
     Active Substance: ETANERCEPT
     Dosage: UNK, QW, (1 EVERY 1 WEEKS)
     Route: 065
  177. ENBREL [Suspect]
     Active Substance: ETANERCEPT
     Route: 065
  178. ENBREL [Suspect]
     Active Substance: ETANERCEPT
     Route: 065
  179. ENBREL [Suspect]
     Active Substance: ETANERCEPT
     Route: 058
  180. ENBREL [Suspect]
     Active Substance: ETANERCEPT
     Route: 065
  181. ENBREL [Suspect]
     Active Substance: ETANERCEPT
     Route: 065
  182. ENBREL [Suspect]
     Active Substance: ETANERCEPT
     Route: 065
  183. ENBREL [Suspect]
     Active Substance: ETANERCEPT
     Route: 065
  184. ENBREL [Suspect]
     Active Substance: ETANERCEPT
     Route: 065
  185. ENBREL [Suspect]
     Active Substance: ETANERCEPT
     Route: 058
  186. ENBREL [Suspect]
     Active Substance: ETANERCEPT
     Route: 058
  187. ENBREL [Suspect]
     Active Substance: ETANERCEPT
     Dosage: 50 MG, QW, (1 EVERY 1 WEEKS)
     Route: 058
  188. ENBREL [Suspect]
     Active Substance: ETANERCEPT
     Dosage: 50 MG, QW, (1 EVERY 1 WEEKS)
     Route: 058
  189. ENBREL [Suspect]
     Active Substance: ETANERCEPT
     Dosage: 50 MG, QW, (1 EVERY 1 WEEKS)
     Route: 058
  190. ENBREL [Suspect]
     Active Substance: ETANERCEPT
     Dosage: 50 MG, QW, (1 EVERY 1 WEEKS)
     Route: 058
  191. ENBREL [Suspect]
     Active Substance: ETANERCEPT
     Dosage: 50 MG, QW, (1 EVERY 1 WEEKS)
     Route: 058
  192. ENBREL [Suspect]
     Active Substance: ETANERCEPT
     Route: 058
  193. ENBREL [Suspect]
     Active Substance: ETANERCEPT
     Route: 048
  194. ENTYVIO [Suspect]
     Active Substance: VEDOLIZUMAB
     Indication: Product used for unknown indication
     Route: 065
  195. ENTYVIO [Suspect]
     Active Substance: VEDOLIZUMAB
     Route: 065
  196. ENTYVIO [Suspect]
     Active Substance: VEDOLIZUMAB
     Route: 065
  197. FLUMETHASONE [Suspect]
     Active Substance: FLUMETHASONE
     Indication: Rheumatoid arthritis
     Route: 065
  198. FLUMETHASONE [Suspect]
     Active Substance: FLUMETHASONE
     Route: 058
  199. FLUMETHASONE PIVALATE [Suspect]
     Active Substance: FLUMETHASONE PIVALATE
     Indication: Rheumatoid arthritis
     Route: 065
  200. FLUMETHASONE PIVALATE [Suspect]
     Active Substance: FLUMETHASONE PIVALATE
     Route: 058
  201. FLUMETHASONE PIVALATE [Suspect]
     Active Substance: FLUMETHASONE PIVALATE
     Route: 003
  202. FOLIC ACID [Suspect]
     Active Substance: FOLIC ACID
     Indication: Rheumatoid arthritis
     Route: 065
  203. FOLIC ACID [Suspect]
     Active Substance: FOLIC ACID
     Route: 065
  204. FOLIC ACID [Suspect]
     Active Substance: FOLIC ACID
     Route: 065
  205. FOLIC ACID [Suspect]
     Active Substance: FOLIC ACID
     Route: 065
  206. FOLIC ACID [Suspect]
     Active Substance: FOLIC ACID
     Route: 065
  207. FOLIC ACID [Suspect]
     Active Substance: FOLIC ACID
     Route: 065
  208. FOLIC ACID [Suspect]
     Active Substance: FOLIC ACID
     Route: 048
  209. FOLIC ACID [Suspect]
     Active Substance: FOLIC ACID
     Route: 058
  210. FOLIC ACID [Suspect]
     Active Substance: FOLIC ACID
     Route: 065
  211. FOLIC ACID [Suspect]
     Active Substance: FOLIC ACID
     Route: 065
  212. FOLIC ACID [Suspect]
     Active Substance: FOLIC ACID
     Route: 065
  213. FOLIC ACID [Suspect]
     Active Substance: FOLIC ACID
     Route: 065
  214. FOLIC ACID [Suspect]
     Active Substance: FOLIC ACID
     Route: 065
  215. FOLIC ACID [Suspect]
     Active Substance: FOLIC ACID
     Route: 065
  216. FOLIC ACID [Suspect]
     Active Substance: FOLIC ACID
     Route: 048
  217. FOLIC ACID [Suspect]
     Active Substance: FOLIC ACID
     Route: 048
  218. FOLIC ACID [Suspect]
     Active Substance: FOLIC ACID
     Route: 065
  219. FOSAMAX [Suspect]
     Active Substance: ALENDRONATE SODIUM
     Indication: Rheumatoid arthritis
     Route: 065
  220. FOSAMAX [Suspect]
     Active Substance: ALENDRONATE SODIUM
     Route: 065
  221. FOSAMAX [Suspect]
     Active Substance: ALENDRONATE SODIUM
     Route: 048
  222. FOSAMAX [Suspect]
     Active Substance: ALENDRONATE SODIUM
     Route: 065
  223. FOSAMAX [Suspect]
     Active Substance: ALENDRONATE SODIUM
     Route: 058
  224. FOSAMAX [Suspect]
     Active Substance: ALENDRONATE SODIUM
     Route: 065
  225. FOSAMAX [Suspect]
     Active Substance: ALENDRONATE SODIUM
     Route: 065
  226. FOSAMAX [Suspect]
     Active Substance: ALENDRONATE SODIUM
     Route: 065
  227. FOSAMAX [Suspect]
     Active Substance: ALENDRONATE SODIUM
     Route: 048
  228. FOSAMAX [Suspect]
     Active Substance: ALENDRONATE SODIUM
     Route: 005
  229. FOSAMAX [Suspect]
     Active Substance: ALENDRONATE SODIUM
     Route: 048
  230. FOSAMAX [Suspect]
     Active Substance: ALENDRONATE SODIUM
     Route: 048
  231. GOLIMUMAB [Suspect]
     Active Substance: GOLIMUMAB
     Indication: Rheumatoid arthritis
     Route: 065
  232. GOLIMUMAB [Suspect]
     Active Substance: GOLIMUMAB
     Indication: Prostatic specific antigen
     Route: 058
  233. HUMIRA [Suspect]
     Active Substance: ADALIMUMAB
     Indication: Rheumatoid arthritis
     Route: 065
  234. HUMIRA [Suspect]
     Active Substance: ADALIMUMAB
     Route: 065
  235. HUMIRA [Suspect]
     Active Substance: ADALIMUMAB
     Route: 065
  236. HUMIRA [Suspect]
     Active Substance: ADALIMUMAB
     Route: 065
  237. HUMIRA [Suspect]
     Active Substance: ADALIMUMAB
     Route: 065
  238. HUMIRA [Suspect]
     Active Substance: ADALIMUMAB
     Route: 058
  239. HUMIRA [Suspect]
     Active Substance: ADALIMUMAB
     Route: 058
  240. HUMIRA [Suspect]
     Active Substance: ADALIMUMAB
     Route: 058
  241. HUMIRA [Suspect]
     Active Substance: ADALIMUMAB
     Route: 058
  242. HUMIRA [Suspect]
     Active Substance: ADALIMUMAB
     Route: 058
  243. HUMIRA [Suspect]
     Active Substance: ADALIMUMAB
     Route: 058
  244. HYDROXYCHLOROQUINE [Suspect]
     Active Substance: HYDROXYCHLOROQUINE
     Indication: Rheumatoid arthritis
     Dosage: 400 MG, QD, (1 EVERY 1 DAYS)
     Route: 048
  245. HYDROXYCHLOROQUINE [Suspect]
     Active Substance: HYDROXYCHLOROQUINE
     Route: 048
  246. HYDROXYCHLOROQUINE [Suspect]
     Active Substance: HYDROXYCHLOROQUINE
     Route: 065
  247. HYDROXYCHLOROQUINE [Suspect]
     Active Substance: HYDROXYCHLOROQUINE
     Route: 005
  248. HYDROXYCHLOROQUINE [Suspect]
     Active Substance: HYDROXYCHLOROQUINE
     Route: 065
  249. HYDROXYCHLOROQUINE [Suspect]
     Active Substance: HYDROXYCHLOROQUINE
     Route: 048
  250. HYDROXYCHLOROQUINE [Suspect]
     Active Substance: HYDROXYCHLOROQUINE
     Dosage: 400 MG, QD, (1 EVERY 1 DAYS)
     Route: 048
  251. HYDROXYCHLOROQUINE [Suspect]
     Active Substance: HYDROXYCHLOROQUINE
     Dosage: 400 MG, QD, (1 EVERY 1 DAYS)
     Route: 065
  252. HYDROXYCHLOROQUINE [Suspect]
     Active Substance: HYDROXYCHLOROQUINE
     Dosage: UNK UNK, QD, (1 EVERY 1 DAYS)
     Route: 048
  253. HYDROXYCHLOROQUINE [Suspect]
     Active Substance: HYDROXYCHLOROQUINE
     Route: 048
  254. HYDROXYCHLOROQUINE [Suspect]
     Active Substance: HYDROXYCHLOROQUINE
     Route: 048
  255. HYDROXYCHLOROQUINE [Suspect]
     Active Substance: HYDROXYCHLOROQUINE
     Route: 005
  256. HYDROXYCHLOROQUINE [Suspect]
     Active Substance: HYDROXYCHLOROQUINE
     Route: 065
  257. HYDROXYCHLOROQUINE [Suspect]
     Active Substance: HYDROXYCHLOROQUINE
     Route: 065
  258. HYDROXYCHLOROQUINE [Suspect]
     Active Substance: HYDROXYCHLOROQUINE
     Route: 065
  259. HYDROXYCHLOROQUINE [Suspect]
     Active Substance: HYDROXYCHLOROQUINE
     Route: 065
  260. HYDROXYCHLOROQUINE [Suspect]
     Active Substance: HYDROXYCHLOROQUINE
     Route: 065
  261. HYDROXYCHLOROQUINE [Suspect]
     Active Substance: HYDROXYCHLOROQUINE
     Route: 065
  262. HYDROXYCHLOROQUINE [Suspect]
     Active Substance: HYDROXYCHLOROQUINE
     Route: 065
  263. HYDROXYCHLOROQUINE [Suspect]
     Active Substance: HYDROXYCHLOROQUINE
     Dosage: 400 MG, QD, (1 EVERY 1 DAYS)
     Route: 048
  264. HYDROXYCHLOROQUINE SULFATE [Suspect]
     Active Substance: HYDROXYCHLOROQUINE SULFATE
     Indication: Rheumatoid arthritis
     Dosage: 400 MG, QD, (1 EVERY 1 DAYS)
     Route: 048
  265. HYDROXYCHLOROQUINE SULFATE [Suspect]
     Active Substance: HYDROXYCHLOROQUINE SULFATE
     Dosage: 400 MG, QD, (1 EVERY 1 DAYS)
     Route: 066
  266. HYDROXYCHLOROQUINE SULFATE [Suspect]
     Active Substance: HYDROXYCHLOROQUINE SULFATE
     Dosage: 400 MG, QD, (1 EVERY 1 DAYS)
     Route: 058
  267. HYDROXYCHLOROQUINE SULFATE [Suspect]
     Active Substance: HYDROXYCHLOROQUINE SULFATE
     Dosage: 400 MG, QD, (1 EVERY 1 DAYS)
     Route: 065
  268. HYDROXYCHLOROQUINE SULFATE [Suspect]
     Active Substance: HYDROXYCHLOROQUINE SULFATE
     Route: 048
  269. HYDROXYCHLOROQUINE SULFATE [Suspect]
     Active Substance: HYDROXYCHLOROQUINE SULFATE
     Route: 016
  270. HYDROXYCHLOROQUINE SULFATE [Suspect]
     Active Substance: HYDROXYCHLOROQUINE SULFATE
     Dosage: 400 MG, QD, (1 EVERY 1 DAYS)
     Route: 065
  271. HYDROXYCHLOROQUINE SULFATE [Suspect]
     Active Substance: HYDROXYCHLOROQUINE SULFATE
     Route: 065
  272. HYDROXYCHLOROQUINE SULFATE [Suspect]
     Active Substance: HYDROXYCHLOROQUINE SULFATE
     Dosage: 400 MG, QD, (1 EVERY 1 DAYS)
     Route: 048
  273. HYDROXYCHLOROQUINE SULFATE [Suspect]
     Active Substance: HYDROXYCHLOROQUINE SULFATE
     Route: 048
  274. HYDROXYCHLOROQUINE SULFATE [Suspect]
     Active Substance: HYDROXYCHLOROQUINE SULFATE
     Dosage: UNK UNK, QD, (1 EVERY 1 DAYS)
     Route: 048
  275. HYDROXYCHLOROQUINE SULFATE [Suspect]
     Active Substance: HYDROXYCHLOROQUINE SULFATE
     Route: 065
  276. HYDROXYCHLOROQUINE SULFATE [Suspect]
     Active Substance: HYDROXYCHLOROQUINE SULFATE
     Route: 065
  277. HYDROXYCHLOROQUINE SULFATE [Suspect]
     Active Substance: HYDROXYCHLOROQUINE SULFATE
     Route: 065
  278. HYDROXYCHLOROQUINE SULFATE [Suspect]
     Active Substance: HYDROXYCHLOROQUINE SULFATE
     Route: 048
  279. HYDROXYCHLOROQUINE SULFATE [Suspect]
     Active Substance: HYDROXYCHLOROQUINE SULFATE
     Route: 048
  280. HYDROXYCHLOROQUINE SULFATE [Suspect]
     Active Substance: HYDROXYCHLOROQUINE SULFATE
     Route: 048
  281. HYDROXYCHLOROQUINE SULFATE [Suspect]
     Active Substance: HYDROXYCHLOROQUINE SULFATE
     Route: 048
  282. INFLIXIMAB [Suspect]
     Active Substance: INFLIXIMAB
     Indication: Rheumatoid arthritis
     Route: 065
  283. INFLIXIMAB [Suspect]
     Active Substance: INFLIXIMAB
     Route: 042
  284. INFLIXIMAB [Suspect]
     Active Substance: INFLIXIMAB
     Route: 042
  285. INFLIXIMAB [Suspect]
     Active Substance: INFLIXIMAB
     Route: 065
  286. INFLIXIMAB [Suspect]
     Active Substance: INFLIXIMAB
     Route: 065
  287. INFLIXIMAB [Suspect]
     Active Substance: INFLIXIMAB
     Route: 065
  288. INFLIXIMAB [Suspect]
     Active Substance: INFLIXIMAB
     Route: 065
  289. KEVZARA [Suspect]
     Active Substance: SARILUMAB
     Indication: Rheumatoid arthritis
     Route: 065
  290. KEVZARA [Suspect]
     Active Substance: SARILUMAB
     Route: 065
  291. LYRICA [Suspect]
     Active Substance: PREGABALIN
     Indication: Rheumatoid arthritis
     Route: 048
  292. METHOTREXATE [Suspect]
     Active Substance: METHOTREXATE
     Indication: Rheumatoid arthritis
     Route: 058
  293. METHOTREXATE [Suspect]
     Active Substance: METHOTREXATE
     Dosage: 20 MG, QD
     Route: 065
  294. METHOTREXATE [Suspect]
     Active Substance: METHOTREXATE
     Dosage: 25 MG, QD, (1 EVERY 1 DAYS)
     Route: 065
  295. METHOTREXATE [Suspect]
     Active Substance: METHOTREXATE
     Dosage: 20 MG, QD
     Route: 065
  296. METHOTREXATE [Suspect]
     Active Substance: METHOTREXATE
     Dosage: 25 MG, QW
     Route: 065
  297. METHOTREXATE [Suspect]
     Active Substance: METHOTREXATE
     Dosage: 15 MG, QD
     Route: 065
  298. METHOTREXATE [Suspect]
     Active Substance: METHOTREXATE
     Route: 065
  299. METHOTREXATE [Suspect]
     Active Substance: METHOTREXATE
     Dosage: 15 UNK, QW
     Route: 065
  300. METHOTREXATE [Suspect]
     Active Substance: METHOTREXATE
     Route: 065
  301. METHOTREXATE [Suspect]
     Active Substance: METHOTREXATE
     Route: 065
  302. METHOTREXATE [Suspect]
     Active Substance: METHOTREXATE
     Dosage: 25 MG, QD
     Route: 065
  303. METHOTREXATE [Suspect]
     Active Substance: METHOTREXATE
     Dosage: 2 G, QD
     Route: 065
  304. METHOTREXATE [Suspect]
     Active Substance: METHOTREXATE
     Dosage: 1 DOSAGE FORM, QD
     Route: 065
  305. METHOTREXATE [Suspect]
     Active Substance: METHOTREXATE
     Route: 048
  306. METHOTREXATE [Suspect]
     Active Substance: METHOTREXATE
     Dosage: 20 MG, QW, (1 EVERY 1)
     Route: 065
  307. METHOTREXATE [Suspect]
     Active Substance: METHOTREXATE
     Dosage: 25 MG, QD
     Route: 065
  308. METHOTREXATE [Suspect]
     Active Substance: METHOTREXATE
     Dosage: 20 MG, QD
     Route: 065
  309. METHOTREXATE [Suspect]
     Active Substance: METHOTREXATE
     Dosage: 20 MG, QW
     Route: 065
  310. METHOTREXATE [Suspect]
     Active Substance: METHOTREXATE
     Dosage: 2 G, QW
     Route: 065
  311. METHOTREXATE [Suspect]
     Active Substance: METHOTREXATE
     Dosage: 15 MG, QW
     Route: 065
  312. METHOTREXATE [Suspect]
     Active Substance: METHOTREXATE
     Dosage: 15 MG, QD
     Route: 065
  313. METHOTREXATE [Suspect]
     Active Substance: METHOTREXATE
     Route: 065
  314. METHOTREXATE [Suspect]
     Active Substance: METHOTREXATE
     Dosage: 25 MG, QW, (1 EVERY 1 WEEKS)
     Route: 058
  315. METHOTREXATE [Suspect]
     Active Substance: METHOTREXATE
     Dosage: 25 MG, QD
     Route: 065
  316. METHOTREXATE [Suspect]
     Active Substance: METHOTREXATE
     Dosage: 25 MG, QW, (1 EVERY 1 WEEKS)
     Route: 013
  317. METHOTREXATE [Suspect]
     Active Substance: METHOTREXATE
     Dosage: 25 MG, QW, (1 EVERY 1 WEEKS)
     Route: 051
  318. METHOTREXATE [Suspect]
     Active Substance: METHOTREXATE
     Dosage: 25 MG, QD, (1 EVERY 1 DAYS)
     Route: 048
  319. METHOTREXATE [Suspect]
     Active Substance: METHOTREXATE
     Dosage: 15 MG, QD, (1 EVERY 1 DAYS)
     Route: 058
  320. METHOTREXATE [Suspect]
     Active Substance: METHOTREXATE
     Route: 048
  321. METHOTREXATE [Suspect]
     Active Substance: METHOTREXATE
     Route: 051
  322. METHOTREXATE [Suspect]
     Active Substance: METHOTREXATE
     Dosage: 25 MG, QW, (1 EVERY 1 WEEKS, 11.0 YEARS)
     Route: 048
  323. METHOTREXATE [Suspect]
     Active Substance: METHOTREXATE
     Dosage: 25 MG, QD
     Route: 048
  324. METHOTREXATE [Suspect]
     Active Substance: METHOTREXATE
     Dosage: 20 MG, QD, (1 EVERY 1 DAYS)
     Route: 048
  325. METHOTREXATE [Suspect]
     Active Substance: METHOTREXATE
     Dosage: 20 MG, QW, (1 EVERY 1 WEEKS, 11.0 YEARS)
     Route: 058
  326. METHOTREXATE [Suspect]
     Active Substance: METHOTREXATE
     Dosage: 25 MG, QD, (1 EVERY 1 DAYS)
     Route: 013
  327. METHOTREXATE [Suspect]
     Active Substance: METHOTREXATE
     Route: 058
  328. METHOTREXATE [Suspect]
     Active Substance: METHOTREXATE
     Route: 058
  329. METHOTREXATE [Suspect]
     Active Substance: METHOTREXATE
     Route: 013
  330. METHOTREXATE [Suspect]
     Active Substance: METHOTREXATE
     Dosage: 15 MG, QD, (1 EVERY 1 WEEKS)
     Route: 013
  331. METHOTREXATE [Suspect]
     Active Substance: METHOTREXATE
     Route: 048
  332. METHOTREXATE [Suspect]
     Active Substance: METHOTREXATE
     Dosage: 25 MG, QD, (1 EVERY 1 DAYS)
     Route: 048
  333. METHOTREXATE [Suspect]
     Active Substance: METHOTREXATE
     Route: 065
  334. METHOTREXATE [Suspect]
     Active Substance: METHOTREXATE
     Dosage: 1 DOSAGE FORM, QD,  (1 EVERY 1 DAYS)
     Route: 048
  335. METHOTREXATE [Suspect]
     Active Substance: METHOTREXATE
     Dosage: 2 G, QD, (1 EVERY 1 DAYS)
     Route: 048
  336. METHOTREXATE [Suspect]
     Active Substance: METHOTREXATE
     Route: 048
  337. METHOTREXATE [Suspect]
     Active Substance: METHOTREXATE
     Route: 048
  338. METHOTREXATE [Suspect]
     Active Substance: METHOTREXATE
     Dosage: 2 G, QD, (1 EVERY 1 DAYS)
     Route: 048
  339. METHOTREXATE [Suspect]
     Active Substance: METHOTREXATE
     Dosage: 25 MG, QW, (1 EVERY 1 WEEKS)
     Route: 013
  340. METHOTREXATE [Suspect]
     Active Substance: METHOTREXATE
     Route: 048
  341. NAPROXEN [Suspect]
     Active Substance: NAPROXEN
     Indication: Rheumatoid arthritis
     Route: 065
  342. NAPROXEN [Suspect]
     Active Substance: NAPROXEN
     Dosage: 500 MG, Q12H
     Route: 065
  343. NAPROXEN SODIUM [Suspect]
     Active Substance: NAPROXEN SODIUM
     Indication: Rheumatoid arthritis
     Route: 065
  344. NAPROXEN SODIUM [Suspect]
     Active Substance: NAPROXEN SODIUM
     Dosage: 1 DOSAGE FORM, QD
     Route: 065
  345. NAPROXEN SODIUM [Suspect]
     Active Substance: NAPROXEN SODIUM
     Dosage: UNK, QD, (1 EVERY 1 DAYS)
     Route: 065
  346. ORENCIA [Suspect]
     Active Substance: ABATACEPT
     Indication: Rheumatoid arthritis
     Route: 042
  347. ORENCIA [Suspect]
     Active Substance: ABATACEPT
     Route: 058
  348. ORENCIA [Suspect]
     Active Substance: ABATACEPT
     Route: 042
  349. ORENCIA [Suspect]
     Active Substance: ABATACEPT
     Route: 048
  350. ORENCIA [Suspect]
     Active Substance: ABATACEPT
     Route: 042
  351. ORENCIA [Suspect]
     Active Substance: ABATACEPT
     Route: 042
  352. ORENCIA [Suspect]
     Active Substance: ABATACEPT
     Route: 042
  353. ORENCIA [Suspect]
     Active Substance: ABATACEPT
     Route: 042
  354. ORENCIA [Suspect]
     Active Substance: ABATACEPT
     Route: 042
  355. ORENCIA [Suspect]
     Active Substance: ABATACEPT
     Route: 042
  356. ORENCIA [Suspect]
     Active Substance: ABATACEPT
     Route: 042
  357. ORENCIA [Suspect]
     Active Substance: ABATACEPT
     Route: 042
  358. ORENCIA [Suspect]
     Active Substance: ABATACEPT
     Route: 042
  359. ORENCIA [Suspect]
     Active Substance: ABATACEPT
     Route: 058
  360. ORENCIA [Suspect]
     Active Substance: ABATACEPT
     Route: 058
  361. ORENCIA [Suspect]
     Active Substance: ABATACEPT
     Route: 058
  362. ORENCIA [Suspect]
     Active Substance: ABATACEPT
     Route: 058
  363. ORENCIA [Suspect]
     Active Substance: ABATACEPT
     Route: 058
  364. ORENCIA [Suspect]
     Active Substance: ABATACEPT
     Route: 058
  365. ORENCIA [Suspect]
     Active Substance: ABATACEPT
     Route: 058
  366. ORENCIA [Suspect]
     Active Substance: ABATACEPT
     Route: 058
  367. ORENCIA [Suspect]
     Active Substance: ABATACEPT
     Route: 065
  368. ORENCIA [Suspect]
     Active Substance: ABATACEPT
     Route: 065
  369. ORENCIA [Suspect]
     Active Substance: ABATACEPT
     Route: 065
  370. ORENCIA [Suspect]
     Active Substance: ABATACEPT
     Route: 065
  371. OTEZLA [Suspect]
     Active Substance: APREMILAST
     Indication: Product used for unknown indication
     Route: 065
  372. OTEZLA [Suspect]
     Active Substance: APREMILAST
     Dosage: 3 MG, BID (EVERY 0.5 DAY)
     Route: 048
  373. PHTHALYLSULFATHIAZOLE [Suspect]
     Active Substance: PHTHALYLSULFATHIAZOLE
     Indication: Rheumatoid arthritis
     Dosage: 1000 MG, BID (1EVERY 0.5DAY)
     Route: 065
  374. PHTHALYLSULFATHIAZOLE [Suspect]
     Active Substance: PHTHALYLSULFATHIAZOLE
     Route: 048
  375. PHTHALYLSULFATHIAZOLE [Suspect]
     Active Substance: PHTHALYLSULFATHIAZOLE
     Route: 016
  376. PHTHALYLSULFATHIAZOLE [Suspect]
     Active Substance: PHTHALYLSULFATHIAZOLE
     Route: 067
  377. PHTHALYLSULFATHIAZOLE [Suspect]
     Active Substance: PHTHALYLSULFATHIAZOLE
     Route: 058
  378. PHTHALYLSULFATHIAZOLE [Suspect]
     Active Substance: PHTHALYLSULFATHIAZOLE
     Route: 065
  379. PHTHALYLSULFATHIAZOLE [Suspect]
     Active Substance: PHTHALYLSULFATHIAZOLE
     Route: 065
  380. PHTHALYLSULFATHIAZOLE [Suspect]
     Active Substance: PHTHALYLSULFATHIAZOLE
     Route: 065
  381. PHTHALYLSULFATHIAZOLE [Suspect]
     Active Substance: PHTHALYLSULFATHIAZOLE
     Route: 058
  382. PHTHALYLSULFATHIAZOLE [Suspect]
     Active Substance: PHTHALYLSULFATHIAZOLE
     Route: 048
  383. PREDNISONE [Suspect]
     Active Substance: PREDNISONE
     Indication: Rheumatoid arthritis
     Route: 065
  384. PREDNISONE [Suspect]
     Active Substance: PREDNISONE
     Indication: Condition aggravated
     Route: 065
  385. PREDNISONE [Suspect]
     Active Substance: PREDNISONE
     Route: 065
  386. PREDNISONE [Suspect]
     Active Substance: PREDNISONE
     Route: 065
  387. PREDNISONE [Suspect]
     Active Substance: PREDNISONE
     Route: 065
  388. PREDNISONE [Suspect]
     Active Substance: PREDNISONE
     Route: 048
  389. PREDNISONE [Suspect]
     Active Substance: PREDNISONE
     Route: 065
  390. PREDNISONE [Suspect]
     Active Substance: PREDNISONE
     Route: 016
  391. PREDNISONE [Suspect]
     Active Substance: PREDNISONE
     Route: 067
  392. PREDNISONE [Suspect]
     Active Substance: PREDNISONE
     Route: 058
  393. PREDNISONE [Suspect]
     Active Substance: PREDNISONE
     Route: 065
  394. PREDNISONE [Suspect]
     Active Substance: PREDNISONE
     Route: 065
  395. PREDNISONE [Suspect]
     Active Substance: PREDNISONE
     Route: 048
  396. PREDNISONE [Suspect]
     Active Substance: PREDNISONE
     Route: 048
  397. PREDNISONE [Suspect]
     Active Substance: PREDNISONE
     Route: 048
  398. PREDNISONE [Suspect]
     Active Substance: PREDNISONE
     Route: 048
  399. PREDNISONE [Suspect]
     Active Substance: PREDNISONE
     Route: 065
  400. PSEUDOEPHEDRINE HYDROCHLORIDE [Suspect]
     Active Substance: PSEUDOEPHEDRINE HYDROCHLORIDE
     Indication: Rheumatoid arthritis
     Dosage: 25 MG, QD, (1 EVERY 1 DAYS)
     Route: 065
  401. PSEUDOEPHEDRINE HYDROCHLORIDE [Suspect]
     Active Substance: PSEUDOEPHEDRINE HYDROCHLORIDE
     Route: 065
  402. PSEUDOEPHEDRINE HYDROCHLORIDE [Suspect]
     Active Substance: PSEUDOEPHEDRINE HYDROCHLORIDE
     Route: 065
  403. PSEUDOEPHEDRINE HYDROCHLORIDE [Suspect]
     Active Substance: PSEUDOEPHEDRINE HYDROCHLORIDE
     Route: 065
  404. PSEUDOEPHEDRINE HYDROCHLORIDE AND TRIPROLIDINE HYDROCHLORIDE [Suspect]
     Active Substance: PSEUDOEPHEDRINE HYDROCHLORIDE\TRIPROLIDINE HYDROCHLORIDE
     Indication: Product used for unknown indication
     Route: 065
  405. CETIRIZINE HYDROCHLORIDE\PSEUDOEPHEDRINE HYDROCHLORIDE [Suspect]
     Active Substance: CETIRIZINE HYDROCHLORIDE\PSEUDOEPHEDRINE HYDROCHLORIDE
     Indication: Rheumatoid arthritis
     Dosage: 10 MG, QD, (1 EVERY 1 DAYS AND EXTENDED- RELEASE))
     Route: 065
  406. CETIRIZINE HYDROCHLORIDE\PSEUDOEPHEDRINE HYDROCHLORIDE [Suspect]
     Active Substance: CETIRIZINE HYDROCHLORIDE\PSEUDOEPHEDRINE HYDROCHLORIDE
     Dosage: 10 MG, QD, (1 EVERY 1 DAYS AND EXTENDED- RELEASE))
     Route: 065
  407. CETIRIZINE HYDROCHLORIDE\PSEUDOEPHEDRINE HYDROCHLORIDE [Suspect]
     Active Substance: CETIRIZINE HYDROCHLORIDE\PSEUDOEPHEDRINE HYDROCHLORIDE
     Route: 065
  408. CETIRIZINE HYDROCHLORIDE\PSEUDOEPHEDRINE HYDROCHLORIDE [Suspect]
     Active Substance: CETIRIZINE HYDROCHLORIDE\PSEUDOEPHEDRINE HYDROCHLORIDE
     Route: 065
  409. CETIRIZINE HYDROCHLORIDE\PSEUDOEPHEDRINE HYDROCHLORIDE [Suspect]
     Active Substance: CETIRIZINE HYDROCHLORIDE\PSEUDOEPHEDRINE HYDROCHLORIDE
     Route: 065
  410. CETIRIZINE HYDROCHLORIDE\PSEUDOEPHEDRINE HYDROCHLORIDE [Suspect]
     Active Substance: CETIRIZINE HYDROCHLORIDE\PSEUDOEPHEDRINE HYDROCHLORIDE
     Route: 065
  411. CETIRIZINE HYDROCHLORIDE\PSEUDOEPHEDRINE HYDROCHLORIDE [Suspect]
     Active Substance: CETIRIZINE HYDROCHLORIDE\PSEUDOEPHEDRINE HYDROCHLORIDE
     Route: 065
  412. CETIRIZINE HYDROCHLORIDE\PSEUDOEPHEDRINE HYDROCHLORIDE [Suspect]
     Active Substance: CETIRIZINE HYDROCHLORIDE\PSEUDOEPHEDRINE HYDROCHLORIDE
     Route: 065
  413. CETIRIZINE HYDROCHLORIDE [Suspect]
     Active Substance: CETIRIZINE HYDROCHLORIDE
     Indication: Rheumatoid arthritis
     Route: 065
  414. CETIRIZINE HYDROCHLORIDE [Suspect]
     Active Substance: CETIRIZINE HYDROCHLORIDE
     Route: 065
  415. CETIRIZINE HYDROCHLORIDE [Suspect]
     Active Substance: CETIRIZINE HYDROCHLORIDE
     Route: 065
  416. REMICADE [Suspect]
     Active Substance: INFLIXIMAB
     Indication: Rheumatoid arthritis
     Route: 065
  417. REMICADE [Suspect]
     Active Substance: INFLIXIMAB
     Route: 042
  418. REMICADE [Suspect]
     Active Substance: INFLIXIMAB
     Route: 042
  419. REMICADE [Suspect]
     Active Substance: INFLIXIMAB
     Route: 065
  420. SIMPONI [Suspect]
     Active Substance: GOLIMUMAB
     Indication: Rheumatoid arthritis
     Route: 065
  421. SIMPONI [Suspect]
     Active Substance: GOLIMUMAB
     Route: 065
  422. SIMPONI [Suspect]
     Active Substance: GOLIMUMAB
     Route: 058
  423. SIMPONI [Suspect]
     Active Substance: GOLIMUMAB
     Route: 058
  424. SIMPONI [Suspect]
     Active Substance: GOLIMUMAB
     Route: 058
  425. SIMPONI [Suspect]
     Active Substance: GOLIMUMAB
     Route: 058
  426. SIMPONI [Suspect]
     Active Substance: GOLIMUMAB
     Route: 058
  427. SIMPONI [Suspect]
     Active Substance: GOLIMUMAB
     Route: 058
  428. SIMPONI [Suspect]
     Active Substance: GOLIMUMAB
     Route: 058
  429. SOLU-MEDROL [Suspect]
     Active Substance: METHYLPREDNISOLONE SODIUM SUCCINATE
     Indication: Product used for unknown indication
     Route: 065
  430. STELARA [Suspect]
     Active Substance: USTEKINUMAB
     Indication: Rheumatoid arthritis
     Route: 058
  431. STELARA [Suspect]
     Active Substance: USTEKINUMAB
     Route: 065
  432. STELARA [Suspect]
     Active Substance: USTEKINUMAB
     Route: 058
  433. STELARA [Suspect]
     Active Substance: USTEKINUMAB
     Route: 058
  434. SULFASALAZINE [Suspect]
     Active Substance: SULFASALAZINE
     Indication: Rheumatoid arthritis
     Dosage: 2 G, QD, (1 EVERY 1 DAYS)
     Route: 065
  435. SULFASALAZINE [Suspect]
     Active Substance: SULFASALAZINE
     Indication: Psoriatic arthropathy
     Route: 065
  436. SULFASALAZINE [Suspect]
     Active Substance: SULFASALAZINE
     Dosage: 300 MG, QD
     Route: 065
  437. SULFASALAZINE [Suspect]
     Active Substance: SULFASALAZINE
     Route: 065
  438. SULFASALAZINE [Suspect]
     Active Substance: SULFASALAZINE
     Route: 048
  439. SULFASALAZINE [Suspect]
     Active Substance: SULFASALAZINE
     Dosage: 300 MG, QD
     Route: 065
  440. SULFASALAZINE [Suspect]
     Active Substance: SULFASALAZINE
     Dosage: 1 G, QD
     Route: 048
  441. SULFASALAZINE [Suspect]
     Active Substance: SULFASALAZINE
     Route: 048
  442. SULFASALAZINE [Suspect]
     Active Substance: SULFASALAZINE
     Route: 065
  443. SULFASALAZINE [Suspect]
     Active Substance: SULFASALAZINE
     Route: 065
  444. SULFASALAZINE [Suspect]
     Active Substance: SULFASALAZINE
     Route: 048
  445. SULFASALAZINE [Suspect]
     Active Substance: SULFASALAZINE
     Route: 048
  446. SULFASALAZINE [Suspect]
     Active Substance: SULFASALAZINE
     Route: 048
  447. SULFASALAZINE [Suspect]
     Active Substance: SULFASALAZINE
     Route: 048
  448. SULFASALAZINE [Suspect]
     Active Substance: SULFASALAZINE
     Route: 058
  449. SULFASALAZINE [Suspect]
     Active Substance: SULFASALAZINE
     Dosage: 2 G, QD
     Route: 048
  450. SULFASALAZINE [Suspect]
     Active Substance: SULFASALAZINE
     Dosage: 300 MG, QD
     Route: 048
  451. SULFASALAZINE [Suspect]
     Active Substance: SULFASALAZINE
     Dosage: 300 MG, QD
     Route: 065
  452. SULFASALAZINE [Suspect]
     Active Substance: SULFASALAZINE
     Route: 048
  453. SULFASALAZINE [Suspect]
     Active Substance: SULFASALAZINE
     Dosage: 2 G, QD
     Route: 048
  454. SULFASALAZINE [Suspect]
     Active Substance: SULFASALAZINE
     Route: 048
  455. SULFASALAZINE [Suspect]
     Active Substance: SULFASALAZINE
     Route: 048
  456. SULFASALAZINE [Suspect]
     Active Substance: SULFASALAZINE
     Dosage: 2 G, QD
     Route: 048
  457. SULFASALAZINE [Suspect]
     Active Substance: SULFASALAZINE
     Route: 065
  458. SULFASALAZINE [Suspect]
     Active Substance: SULFASALAZINE
     Route: 065
  459. SULFASALAZINE [Suspect]
     Active Substance: SULFASALAZINE
     Route: 065
  460. SULFASALAZINE [Suspect]
     Active Substance: SULFASALAZINE
     Route: 065
  461. SULFASALAZINE [Suspect]
     Active Substance: SULFASALAZINE
     Route: 048
  462. SULFASALAZINE [Suspect]
     Active Substance: SULFASALAZINE
     Route: 058
  463. SULFASALAZINE [Suspect]
     Active Substance: SULFASALAZINE
     Route: 065
  464. SULFASALAZINE [Suspect]
     Active Substance: SULFASALAZINE
     Route: 048
  465. SULFASALAZINE [Suspect]
     Active Substance: SULFASALAZINE
     Route: 048
  466. SULFASALAZINE [Suspect]
     Active Substance: SULFASALAZINE
     Route: 058
  467. SULFASALAZINE [Suspect]
     Active Substance: SULFASALAZINE
     Route: 048
  468. SULFASALAZINE [Suspect]
     Active Substance: SULFASALAZINE
     Route: 065
  469. SULFASALAZINE [Suspect]
     Active Substance: SULFASALAZINE
     Route: 048
  470. SULFASALAZINE [Suspect]
     Active Substance: SULFASALAZINE
     Route: 048
  471. SULFASALAZINE [Suspect]
     Active Substance: SULFASALAZINE
     Route: 065
  472. SULFASALAZINE [Suspect]
     Active Substance: SULFASALAZINE
     Route: 065
  473. SULFASALAZINE [Suspect]
     Active Substance: SULFASALAZINE
     Route: 065
  474. TOCILIZUMAB [Suspect]
     Active Substance: TOCILIZUMAB
     Indication: Rheumatoid arthritis
     Dosage: 5 MG, QD
     Route: 048
  475. TOCILIZUMAB [Suspect]
     Active Substance: TOCILIZUMAB
     Dosage: 5 MG, QW
     Route: 048
  476. TOCILIZUMAB [Suspect]
     Active Substance: TOCILIZUMAB
     Dosage: 5 MG, QD
     Route: 065
  477. TOCILIZUMAB [Suspect]
     Active Substance: TOCILIZUMAB
     Route: 058
  478. TOCILIZUMAB [Suspect]
     Active Substance: TOCILIZUMAB
     Route: 065
  479. TOCILIZUMAB [Suspect]
     Active Substance: TOCILIZUMAB
     Dosage: 5 MG, QD
     Route: 065
  480. TOFACITINIB [Suspect]
     Active Substance: TOFACITINIB
     Indication: Product used for unknown indication
     Dosage: 5 MG, QD
     Route: 065
  481. TOFACITINIB [Suspect]
     Active Substance: TOFACITINIB
     Dosage: 5 MG, QD
     Route: 048
  482. CALCIUM CARBONATE [Suspect]
     Active Substance: CALCIUM CARBONATE
     Indication: Product used for unknown indication
     Route: 065
  483. ACETAMINOPHEN AND CODEINE [Suspect]
     Active Substance: ACETAMINOPHEN\CODEINE PHOSPHATE
     Indication: Product used for unknown indication
     Route: 065
  484. ALENDRONATE SODIUM\CHOLECALCIFEROL [Suspect]
     Active Substance: ALENDRONATE SODIUM\CHOLECALCIFEROL
     Indication: Rheumatoid arthritis
     Route: 048
  485. ALENDRONIC ACID [Suspect]
     Active Substance: ALENDRONIC ACID
     Indication: Rheumatoid arthritis
     Route: 065
  486. ALENDRONIC ACID [Suspect]
     Active Substance: ALENDRONIC ACID
     Route: 048
  487. ALENDRONIC ACID [Suspect]
     Active Substance: ALENDRONIC ACID
     Route: 065
  488. ALENDRONIC ACID [Suspect]
     Active Substance: ALENDRONIC ACID
     Route: 048
  489. ALENDRONIC ACID [Suspect]
     Active Substance: ALENDRONIC ACID
     Route: 048
  490. ALENDRONIC ACID [Suspect]
     Active Substance: ALENDRONIC ACID
     Route: 048
  491. PANTOPRAZOLE SODIUM [Suspect]
     Active Substance: PANTOPRAZOLE SODIUM
     Indication: Product used for unknown indication
     Route: 065
  492. TOFACITINIB CITRATE [Suspect]
     Active Substance: TOFACITINIB CITRATE
     Indication: Rheumatoid arthritis
     Route: 065
  493. TOFACITINIB CITRATE [Suspect]
     Active Substance: TOFACITINIB CITRATE
     Route: 065
  494. TOFACITINIB CITRATE [Suspect]
     Active Substance: TOFACITINIB CITRATE
     Route: 065
  495. TRIPROLIDINE [Suspect]
     Active Substance: TRIPROLIDINE
     Indication: Product used for unknown indication
     Route: 065
  496. USTEKINUMAB [Suspect]
     Active Substance: USTEKINUMAB
     Indication: Product used for unknown indication
     Route: 042
  497. USTEKINUMAB [Suspect]
     Active Substance: USTEKINUMAB
     Route: 058
  498. USTEKINUMAB [Suspect]
     Active Substance: USTEKINUMAB
     Route: 065
  499. PREDNISONE [Suspect]
     Active Substance: PREDNISONE
     Indication: Rheumatoid arthritis
     Route: 048
  500. XELJANZ [Suspect]
     Active Substance: TOFACITINIB CITRATE
     Indication: Rheumatoid arthritis
     Route: 065
  501. XELJANZ [Suspect]
     Active Substance: TOFACITINIB CITRATE
     Dosage: 5 MG, QD
     Route: 048
  502. XELJANZ [Suspect]
     Active Substance: TOFACITINIB CITRATE
     Dosage: 5 MG, QW
     Route: 065
  503. XELJANZ [Suspect]
     Active Substance: TOFACITINIB CITRATE
     Route: 065
  504. XELJANZ [Suspect]
     Active Substance: TOFACITINIB CITRATE
     Route: 065
  505. XELJANZ [Suspect]
     Active Substance: TOFACITINIB CITRATE
     Route: 065
  506. XELJANZ [Suspect]
     Active Substance: TOFACITINIB CITRATE
     Route: 065
  507. XELJANZ [Suspect]
     Active Substance: TOFACITINIB CITRATE
     Route: 048
  508. XELJANZ [Suspect]
     Active Substance: TOFACITINIB CITRATE
     Route: 065
  509. XELJANZ [Suspect]
     Active Substance: TOFACITINIB CITRATE
     Dosage: 5 MG, QD
     Route: 048
  510. XELJANZ [Suspect]
     Active Substance: TOFACITINIB CITRATE
     Dosage: 5 MG, QD
     Route: 048
  511. TUMS ULTRA [Suspect]
     Active Substance: CALCIUM CARBONATE
     Indication: Product used for unknown indication
     Route: 065
  512. DICLOFENAC DIETHYLAMINE [Suspect]
     Active Substance: DICLOFENAC DIETHYLAMINE
     Indication: Product used for unknown indication
     Route: 065
  513. CETIRIZINE HYDROCHLORIDE\IBUPROFEN\PSEUDOEPHEDRINE HYDROCHLORIDE [Suspect]
     Active Substance: CETIRIZINE HYDROCHLORIDE\IBUPROFEN\PSEUDOEPHEDRINE HYDROCHLORIDE
     Indication: Rheumatoid arthritis
     Route: 048
  514. CETIRIZINE HYDROCHLORIDE\IBUPROFEN\PSEUDOEPHEDRINE HYDROCHLORIDE [Suspect]
     Active Substance: CETIRIZINE HYDROCHLORIDE\IBUPROFEN\PSEUDOEPHEDRINE HYDROCHLORIDE
     Route: 065
  515. CETIRIZINE HYDROCHLORIDE\IBUPROFEN\PSEUDOEPHEDRINE HYDROCHLORIDE [Suspect]
     Active Substance: CETIRIZINE HYDROCHLORIDE\IBUPROFEN\PSEUDOEPHEDRINE HYDROCHLORIDE
     Route: 065
  516. ACETAMINOPHEN [Concomitant]
     Active Substance: ACETAMINOPHEN
     Indication: Product used for unknown indication
     Route: 065
  517. ACETAMINOPHEN\CAFFEINE\CODEINE [Concomitant]
     Active Substance: ACETAMINOPHEN\CAFFEINE\CODEINE
     Indication: Product used for unknown indication
     Route: 065
  518. ACETAMINOPHEN\CAFFEINE [Concomitant]
     Active Substance: ACETAMINOPHEN\CAFFEINE
     Indication: Product used for unknown indication
     Route: 065
  519. CALCIUM [Concomitant]
     Active Substance: CALCIUM
     Indication: Product used for unknown indication
     Route: 065
  520. CALCIUM GLUCONATE [Concomitant]
     Active Substance: CALCIUM GLUCONATE
     Indication: Product used for unknown indication
     Route: 065
  521. CETIRIZINE [Concomitant]
     Active Substance: CETIRIZINE HYDROCHLORIDE
     Indication: Product used for unknown indication
     Route: 065
  522. CETIRIZINE HYDROCHLORIDE\IBUPROFEN\PSEUDOEPHEDRINE HYDROCHLORIDE [Concomitant]
     Active Substance: CETIRIZINE HYDROCHLORIDE\IBUPROFEN\PSEUDOEPHEDRINE HYDROCHLORIDE
     Indication: Rheumatoid arthritis
     Route: 065
  523. CHOLECALCIFEROL [Concomitant]
     Active Substance: CHOLECALCIFEROL
     Indication: Product used for unknown indication
     Route: 065
  524. MAGNESIUM [Concomitant]
     Active Substance: MAGNESIUM
     Indication: Product used for unknown indication
     Route: 065
  525. RAMIPRIL [Concomitant]
     Active Substance: RAMIPRIL
     Indication: Product used for unknown indication
     Route: 065
  526. RISEDRONATE SODIUM [Concomitant]
     Active Substance: RISEDRONATE SODIUM
     Indication: Product used for unknown indication
     Route: 065
  527. SULFASALAZINE [Concomitant]
     Active Substance: SULFASALAZINE
     Indication: Product used for unknown indication
     Route: 065
  528. ZESTRIL [Concomitant]
     Active Substance: LISINOPRIL
     Indication: Product used for unknown indication
     Route: 065
  529. CETIRIZINE HYDROCHLORIDE [Concomitant]
     Active Substance: CETIRIZINE HYDROCHLORIDE
     Indication: Product used for unknown indication
     Route: 065
  530. DICLOFENAC SODIUM [Suspect]
     Active Substance: DICLOFENAC SODIUM
     Indication: Product used for unknown indication
     Route: 065
  531. DICLOFENAC SODIUM [Suspect]
     Active Substance: DICLOFENAC SODIUM
     Route: 047
  532. DICLOFENAC SODIUM [Suspect]
     Active Substance: DICLOFENAC SODIUM
     Dosage: 50 MG, QD
     Route: 065
  533. DICLOFENAC SODIUM [Suspect]
     Active Substance: DICLOFENAC SODIUM
     Route: 065
  534. DICLOFENAC SODIUM [Suspect]
     Active Substance: DICLOFENAC SODIUM
     Route: 065
  535. DICLOFENAC SODIUM [Suspect]
     Active Substance: DICLOFENAC SODIUM
     Route: 058
  536. NAPROXEN [Suspect]
     Active Substance: NAPROXEN
     Indication: Product used for unknown indication
     Route: 065
  537. CORTISONE ACETATE [Suspect]
     Active Substance: CORTISONE ACETATE
     Indication: Rheumatoid arthritis
     Route: 065
  538. CORTISONE ACETATE [Suspect]
     Active Substance: CORTISONE ACETATE
     Indication: Systemic lupus erythematosus
     Route: 065
  539. CORTISONE ACETATE [Suspect]
     Active Substance: CORTISONE ACETATE
     Indication: Pemphigus
     Route: 065
  540. CORTISONE ACETATE [Suspect]
     Active Substance: CORTISONE ACETATE
     Route: 065

REACTIONS (43)
  - Pericarditis [Fatal]
  - Product use issue [Fatal]
  - Psoriasis [Fatal]
  - Psoriatic arthropathy [Fatal]
  - Rash [Fatal]
  - Rheumatic fever [Fatal]
  - Rheumatoid arthritis [Fatal]
  - Rheumatoid factor positive [Fatal]
  - Sleep disorder [Fatal]
  - Swelling [Fatal]
  - Abdominal pain [Fatal]
  - Abdominal pain upper [Fatal]
  - Adjustment disorder with depressed mood [Fatal]
  - Adverse drug reaction [Fatal]
  - Adverse event [Fatal]
  - Alopecia [Fatal]
  - Amnesia [Fatal]
  - Anti-cyclic citrullinated peptide antibody positive [Fatal]
  - Anxiety [Fatal]
  - Arthralgia [Fatal]
  - Blister [Fatal]
  - Blood cholesterol increased [Fatal]
  - Chest pain [Fatal]
  - Delirium [Fatal]
  - Contraindicated product administered [Fatal]
  - Decreased appetite [Fatal]
  - Depression [Fatal]
  - Diarrhoea [Fatal]
  - Discomfort [Fatal]
  - Arthropathy [Fatal]
  - Dislocation of vertebra [Fatal]
  - Dizziness [Fatal]
  - Drug hypersensitivity [Fatal]
  - Drug intolerance [Fatal]
  - Duodenal ulcer perforation [Fatal]
  - Dyspnoea [Fatal]
  - Exposure during pregnancy [Fatal]
  - Fatigue [Fatal]
  - Therapeutic product effect decreased [Fatal]
  - Off label use [Fatal]
  - Product use in unapproved indication [Fatal]
  - Condition aggravated [Fatal]
  - Drug ineffective [Fatal]
